FAERS Safety Report 20077073 (Version 1)
Quarter: 2021Q4

REPORT INFORMATION
  Report Type: Spontaneous
  Country: FR (occurrence: FR)
  Receive Date: 20211116
  Receipt Date: 20211116
  Transmission Date: 20220303
  Serious: Yes (Hospitalization)
  Sender: FDA-Public Use
  Company Number: FR-AMERICAN REGENT INC-2021002963

PATIENT
  Age: 34 Year
  Sex: Female
  Weight: 35 kg

DRUGS (2)
  1. FERINJECT [Suspect]
     Active Substance: FERRIC CARBOXYMALTOSE
     Indication: Iron deficiency anaemia
     Dosage: 500 MG, 1 TOTAL
     Route: 042
     Dates: start: 20210929, end: 20210929
  2. ILOPROST TROMETHAMINE [Concomitant]
     Active Substance: ILOPROST TROMETHAMINE
     Indication: Product used for unknown indication
     Dosage: 0.1 MILLIGRAM PER MILLILITRE
     Route: 065

REACTIONS (2)
  - Intestinal obstruction [Recovered/Resolved]
  - Hypophosphataemia [Recovered/Resolved]

NARRATIVE: CASE EVENT DATE: 20211001
